FAERS Safety Report 6326836-8 (Version None)
Quarter: 2009Q3

REPORT INFORMATION
  Report Type: 
  Country: None (occurrence: None)
  Receive Date: 20090825
  Receipt Date: 20090824
  Transmission Date: 20100115
  Serious: Yes (Other)
  Sender: FDA-Public Use
  Company Number: GR-JNJFOC-20090806416

PATIENT
  Sex: Male

DRUGS (2)
  1. CALCIUM CARBONATE [Suspect]
     Indication: HYPOCALCAEMIA
  2. 1A-(OH)D3 [Suspect]
     Indication: HYPOCALCAEMIA
     Dosage: 0.12 MICROGRAMS/KG/DAY

REACTIONS (1)
  - NEPHROCALCINOSIS [None]
